FAERS Safety Report 21632924 (Version 2)
Quarter: 2022Q4

REPORT INFORMATION
  Report Type: Spontaneous
  Country: IN (occurrence: IN)
  Receive Date: 20221123
  Receipt Date: 20221227
  Transmission Date: 20230113
  Serious: Yes (Other)
  Sender: FDA-Public Use
  Company Number: IN-GLENMARK PHARMACEUTICALS-2022GMK075973

PATIENT

DRUGS (1)
  1. TELMISARTAN [Suspect]
     Active Substance: TELMISARTAN
     Indication: Product used for unknown indication
     Dosage: UNK, (CONSUMED 2 STRIPS (30 TABLETS) OF TELMA 80 AT A TIME)
     Route: 065

REACTIONS (2)
  - Overdose [Unknown]
  - Product administered by wrong person [Unknown]
